FAERS Safety Report 6985907-3 (Version None)
Quarter: 2010Q3

REPORT INFORMATION
  Report Type: 
  Country: None (occurrence: None)
  Receive Date: 20100915
  Receipt Date: 20100913
  Transmission Date: 20110219
  Serious: Yes (Hospitalization, Other)
  Sender: FDA-Public Use
  Company Number: US-ROXANE LABORATORIES, INC.-2010-RO-01215RO

PATIENT
  Age: 10 Month
  Sex: Female

DRUGS (2)
  1. PROPRANOLOL [Suspect]
     Indication: HAEMANGIOMA
     Route: 048
  2. PROPRANOLOL [Suspect]
     Route: 048

REACTIONS (2)
  - HYPOGLYCAEMIA [None]
  - RESPIRATORY SYNCYTIAL VIRUS TEST POSITIVE [None]
